FAERS Safety Report 16432076 (Version 4)
Quarter: 2021Q1

REPORT INFORMATION
  Report Type: Report from Study
  Country: CY (occurrence: CY)
  Receive Date: 20190614
  Receipt Date: 20210224
  Transmission Date: 20210419
  Serious: Yes (Life-Threatening, Hospitalization)
  Sender: FDA-Public Use
  Company Number: CY-PFIZER INC-2019255076

PATIENT
  Age: 74 Year
  Sex: Female
  Weight: 54 kg

DRUGS (24)
  1. TRASTUZUMAB. [Suspect]
     Active Substance: TRASTUZUMAB
     Indication: HER2 POSITIVE BREAST CANCER
     Dosage: 2 MG/KG, WEEKLY, MOST RECENT DOSE PRIOR TO THE EVENT: 10FEB2017
     Route: 042
     Dates: start: 20170210
  2. BEPANTHOL [DEXPANTHENOL] [Concomitant]
     Route: 065
     Dates: start: 20170217
  3. PROMETHASIN [Concomitant]
     Route: 065
     Dates: start: 20161122, end: 20170324
  4. NU?SEALS ASPIRIN [Concomitant]
     Active Substance: ASPIRIN
     Route: 065
     Dates: start: 20160315
  5. RANITINE [Concomitant]
     Active Substance: RANITIDINE HYDROCHLORIDE
     Route: 065
     Dates: start: 20161122, end: 20170324
  6. T4 [Concomitant]
     Active Substance: LEVOTHYROXINE
     Dosage: UNK
     Dates: start: 20160315
  7. PACLITAXEL. [Suspect]
     Active Substance: PACLITAXEL
     Indication: HER2 POSITIVE BREAST CANCER
     Dosage: 60 MG/M2, WEEKLY, MOST RECENT DOSE PRIOR TO THE EVENT: 13JAN2017
     Route: 042
     Dates: start: 20161122, end: 20161230
  8. PARAPLATIN [Suspect]
     Active Substance: CARBOPLATIN
     Indication: BREAST CANCER
     Dosage: UNK, EVERY 3 WEEKS (MOST RECENT DOSE: 26MAR2018)
     Route: 042
     Dates: start: 20180207
  9. NYSTATIN. [Concomitant]
     Active Substance: NYSTATIN
     Route: 065
     Dates: start: 20161121
  10. AGREGEX [Concomitant]
     Active Substance: CLOPIDOGREL BISULFATE
     Dates: start: 20160315
  11. BRUFEN [Concomitant]
     Active Substance: IBUPROFEN
     Indication: ARTHRALGIA
     Dosage: 202017 UNK, UNK
     Dates: start: 20170620, end: 20180128
  12. DEXAMETHASONE. [Concomitant]
     Active Substance: DEXAMETHASONE
     Route: 065
     Dates: start: 20161122, end: 20170324
  13. SIMVASTATIN. [Concomitant]
     Active Substance: SIMVASTATIN
     Route: 065
     Dates: start: 20160315
  14. PEGFILGRASTIM [Concomitant]
     Active Substance: PEGFILGRASTIM
     Dosage: UNK
     Dates: start: 20170606, end: 20180128
  15. RAMIPRIL. [Concomitant]
     Active Substance: RAMIPRIL
     Dosage: UNK
     Dates: start: 20170317
  16. PLAVIX [Concomitant]
     Active Substance: CLOPIDOGREL BISULFATE
     Dosage: UNK
     Dates: start: 20170317
  17. OMEPRAZOLE. [Concomitant]
     Active Substance: OMEPRAZOLE
     Dosage: UNK
     Dates: start: 20170522
  18. VINORELBINE [Suspect]
     Active Substance: VINORELBINE TARTRATE
     Indication: HER2 POSITIVE BREAST CANCER
     Dosage: 25 MG/M2, WEEKLY (DATE OF MOST RECENT DOSE: 24JAN2018)
     Route: 042
     Dates: start: 20170515, end: 20180124
  19. GEMZAR [Suspect]
     Active Substance: GEMCITABINE HYDROCHLORIDE
     Indication: BREAST CANCER
     Dosage: 1000 MG/M2, WEEKLY (DATE OF MOST RECENT DOSE: 02APR2018)
     Route: 042
     Dates: start: 20180207
  20. METOCHLOPRAMIDE [Concomitant]
     Active Substance: METOCLOPRAMIDE HYDROCHLORIDE
     Dosage: UNK
     Dates: start: 20161121, end: 20171220
  21. OMEPRAZOLE. [Concomitant]
     Active Substance: OMEPRAZOLE
     Indication: GASTROOESOPHAGEAL REFLUX DISEASE
     Dosage: UNK
     Dates: start: 20170317, end: 20170318
  22. ONDANSETRON [Concomitant]
     Active Substance: ONDANSETRON
     Dosage: UNK
     Dates: start: 20180207, end: 20180208
  23. DENEX [Concomitant]
     Dates: start: 20160315
  24. SPIRONOLACTONE. [Concomitant]
     Active Substance: SPIRONOLACTONE
     Dosage: UNK
     Dates: start: 20170317

REACTIONS (24)
  - Ageusia [Recovered/Resolved]
  - Dry skin [Recovered/Resolved]
  - Lacrimation increased [Recovered/Resolved]
  - Vision blurred [Recovered/Resolved]
  - Fatigue [Recovered/Resolved]
  - Upper respiratory tract infection [Recovered/Resolved]
  - Urinary incontinence [Recovered/Resolved]
  - Amnesia [Recovered/Resolved]
  - Cushingoid [Recovered/Resolved]
  - Vulvovaginal mycotic infection [Recovered/Resolved]
  - Neutrophil count decreased [Recovered/Resolved]
  - Peripheral motor neuropathy [Recovered/Resolved]
  - Hypersensitivity [Recovered/Resolved]
  - Nausea [Recovered/Resolved]
  - Cough [Recovered/Resolved]
  - White blood cell count decreased [Recovered/Resolved]
  - Decreased appetite [Recovered/Resolved]
  - Constipation [Recovered/Resolved]
  - Stomatitis [Recovered/Resolved]
  - Peripheral sensory neuropathy [Recovered/Resolved]
  - Depression [Recovered/Resolved]
  - Catheter site erythema [Recovered/Resolved]
  - Conjunctivitis [Recovered/Resolved]
  - Skin irritation [Recovered/Resolved]

NARRATIVE: CASE EVENT DATE: 20170308
